FAERS Safety Report 20175544 (Version 1)
Quarter: 2021Q4

REPORT INFORMATION
  Report Type: Spontaneous
  Country: TW (occurrence: TW)
  Receive Date: 20211213
  Receipt Date: 20211213
  Transmission Date: 20220304
  Serious: Yes (Other)
  Sender: FDA-Public Use
  Company Number: TW-Merck Healthcare KGaA-9284029

PATIENT
  Age: 53 Year
  Sex: Female

DRUGS (16)
  1. ERBITUX [Suspect]
     Active Substance: CETUXIMAB
     Indication: Product used for unknown indication
     Dosage: UNK UNK, UNKNOWN
     Route: 065
     Dates: start: 20191227
  2. CISPLATIN [Concomitant]
     Active Substance: CISPLATIN
     Indication: Product used for unknown indication
     Dosage: UNK
     Dates: start: 20100611, end: 20100729
  3. CARBOPLATIN [Concomitant]
     Active Substance: CARBOPLATIN
     Indication: Product used for unknown indication
     Dosage: UNK
     Dates: start: 20100611
  4. PACLITAXEL [Concomitant]
     Active Substance: PACLITAXEL
     Indication: Product used for unknown indication
     Dosage: UNK
     Dates: start: 20150901
  5. DOCETAXEL [Concomitant]
     Active Substance: DOCETAXEL
     Indication: Product used for unknown indication
     Dosage: UNK
     Dates: start: 20161128
  6. GEMCITABINE [Concomitant]
     Active Substance: GEMCITABINE
     Indication: Product used for unknown indication
     Dosage: UNK
     Dates: start: 20200317
  7. TARCEVA [Concomitant]
     Active Substance: ERLOTINIB HYDROCHLORIDE
     Indication: Product used for unknown indication
     Dosage: UNK
  8. ERLOTINIB [Concomitant]
     Active Substance: ERLOTINIB
     Indication: Product used for unknown indication
     Dosage: UNK
  9. OSIMERTINIB [Concomitant]
     Active Substance: OSIMERTINIB
     Indication: Product used for unknown indication
     Dosage: UNK
  10. TAGRISSO [Concomitant]
     Active Substance: OSIMERTINIB
     Indication: Product used for unknown indication
     Dosage: UNK
  11. BEVACIZUMAB [Concomitant]
     Active Substance: BEVACIZUMAB
     Indication: Product used for unknown indication
     Dosage: UNK
  12. YERVOY [Concomitant]
     Active Substance: IPILIMUMAB
     Indication: Product used for unknown indication
     Dosage: UNK
  13. NIVOLUMAB [Concomitant]
     Active Substance: NIVOLUMAB
     Indication: Product used for unknown indication
     Dosage: UNK
  14. AFATINIB [Concomitant]
     Active Substance: AFATINIB
     Indication: Product used for unknown indication
     Dosage: UNK
  15. IRESSA [Concomitant]
     Active Substance: GEFITINIB
     Indication: Product used for unknown indication
     Dosage: UNK
  16. PEMETREXED [Concomitant]
     Active Substance: PEMETREXED
     Indication: Product used for unknown indication
     Dosage: UNK

REACTIONS (9)
  - Metastases to central nervous system [Unknown]
  - Acute kidney injury [Unknown]
  - Pleural effusion [Unknown]
  - Bone disorder [Unknown]
  - Lymphadenopathy mediastinal [Unknown]
  - Cough [Unknown]
  - Oedema [Unknown]
  - Pain [Unknown]
  - Disease progression [Unknown]

NARRATIVE: CASE EVENT DATE: 20200317
